FAERS Safety Report 9333277 (Version 1)
Quarter: 2013Q2

REPORT INFORMATION
  Report Type: Spontaneous
  Country: US (occurrence: US)
  Receive Date: 20130606
  Receipt Date: 20130606
  Transmission Date: 20140414
  Serious: Yes (Hospitalization)
  Sender: FDA-Public Use
  Company Number: US-OPTIMER PHARMACEUTICALS, INC.-20120164

PATIENT
  Age: 35 Year
  Sex: Female

DRUGS (10)
  1. DIFICID [Suspect]
     Indication: CLOSTRIDIUM DIFFICILE COLITIS
     Dosage: 200 MG, BID
     Route: 048
     Dates: start: 20121115
  2. METRONIDAZOLE [Concomitant]
     Indication: PRODUCT USED FOR UNKNOWN INDICATION
     Dosage: UNK
     Dates: start: 2012, end: 2012
  3. METRONIDAZOLE [Concomitant]
     Dosage: UNK
     Dates: start: 20121114, end: 20121115
  4. ACETAMINOPHEN [Concomitant]
     Indication: PAIN
     Dosage: 500 MG, EVERY 6 HOURS PRN
     Route: 048
     Dates: start: 20121114
  5. ACETAMINOPHEN [Concomitant]
     Indication: PYREXIA
  6. BENADRYL [Concomitant]
     Indication: DRUG REACTION WITH EOSINOPHILIA AND SYSTEMIC SYMPTOMS
     Dosage: ^25,^ EVERY 6 HOURS (SCHEDULE)
     Route: 048
     Dates: start: 20121114
  7. PREDNISONE [Concomitant]
     Indication: DRUG REACTION WITH EOSINOPHILIA AND SYSTEMIC SYMPTOMS
     Dosage: 20 MG, QD
     Route: 048
     Dates: start: 20121114
  8. DULOXETINE [Concomitant]
     Indication: PRODUCT USED FOR UNKNOWN INDICATION
     Dosage: 30 MG, QD
     Route: 048
  9. ENOXAPARIN [Concomitant]
     Indication: PRODUCT USED FOR UNKNOWN INDICATION
     Dosage: 40 MG, QD
     Route: 058
  10. HYDROMORPHONE [Concomitant]
     Indication: PAIN
     Dosage: 4 MG, EVERY 4 HOURS PRN
     Route: 048
     Dates: start: 20121114

REACTIONS (1)
  - Blood alkaline phosphatase increased [Not Recovered/Not Resolved]
